FAERS Safety Report 7024462-9 (Version None)
Quarter: 2010Q3

REPORT INFORMATION
  Report Type: 
  Country: None (occurrence: None)
  Receive Date: 20100917
  Receipt Date: 20090623
  Transmission Date: 20110219
  Serious: No
  Sender: FDA-Public Use
  Company Number: 2009-00180

PATIENT
  Age: 40 Year
  Sex: Male
  Weight: 86.1834 kg

DRUGS (5)
  1. ZICAM INTENSE SINUS RELIEF [Suspect]
     Dosage: BID X 2 DOSES
     Dates: start: 20081201, end: 20081201
  2. ZYRTEC [Concomitant]
  3. SINGULAIR [Concomitant]
  4. ADVAIR DISKUS 100/50 [Concomitant]
  5. NASONEX [Concomitant]

REACTIONS (5)
  - AGEUSIA [None]
  - ANOSMIA [None]
  - OLFACTORY NERVE DISORDER [None]
  - SINUS POLYP [None]
  - TOBACCO USER [None]
